FAERS Safety Report 9699275 (Version 2)
Quarter: 2015Q3

REPORT INFORMATION
  Report Type: Spontaneous
  Country: US (occurrence: US)
  Receive Date: 20131120
  Receipt Date: 20150803
  Transmission Date: 20151125
  Serious: No
  Sender: FDA-Public Use
  Company Number: US-GILEAD-2008-0015334

PATIENT
  Age: 56 Year
  Sex: Female
  Weight: 59.42 kg

DRUGS (18)
  1. COUMADIN [Concomitant]
     Active Substance: WARFARIN SODIUM
     Dosage: UD
     Route: 048
  2. IMODIUM [Concomitant]
     Active Substance: LOPERAMIDE HYDROCHLORIDE
     Dosage: UD
     Route: 048
  3. CENTANY [Concomitant]
     Active Substance: MUPIROCIN
     Dosage: UD
     Route: 061
  4. OXYGEN. [Concomitant]
     Active Substance: OXYGEN
     Dosage: UD
     Route: 055
  5. MULTIVITAMIN [Concomitant]
     Active Substance: VITAMINS
     Dosage: UD
     Route: 048
  6. ACTONEL [Concomitant]
     Active Substance: RISEDRONATE SODIUM
     Dosage: UD
     Route: 048
  7. FEXOFENADINE [Concomitant]
     Active Substance: FEXOFENADINE\FEXOFENADINE HYDROCHLORIDE
     Dosage: UD
     Route: 048
  8. VITAMIN E [Concomitant]
     Active Substance: .ALPHA.-TOCOPHEROL
     Dosage: UD
     Route: 048
  9. SPIRONOLACTONE. [Concomitant]
     Active Substance: SPIRONOLACTONE
     Dosage: UD
     Route: 048
  10. BENGAY OINTMENT [Concomitant]
     Dosage: UD
     Route: 061
  11. FLOVENT [Concomitant]
     Active Substance: FLUTICASONE PROPIONATE
     Dosage: UD
     Route: 055
  12. TYLENOL [Concomitant]
     Active Substance: ACETAMINOPHEN
     Dosage: UD
     Route: 048
  13. CALCIUM [Concomitant]
     Active Substance: CALCIUM
     Dosage: UD
     Route: 048
  14. NEURONTIN [Concomitant]
     Active Substance: GABAPENTIN
     Dosage: UD
     Route: 048
  15. RANITIDINE [Concomitant]
     Active Substance: RANITIDINE\RANITIDINE HYDROCHLORIDE
     Dosage: UD
     Route: 048
  16. BL GARLIC [Concomitant]
     Dosage: UD
     Route: 048
  17. LETAIRIS [Suspect]
     Active Substance: AMBRISENTAN
     Indication: PULMONARY ARTERIAL HYPERTENSION
     Route: 048
  18. VITAMIN C [Concomitant]
     Active Substance: ASCORBIC ACID
     Dosage: UD
     Route: 048

REACTIONS (1)
  - Blood cholesterol increased [Unknown]
